FAERS Safety Report 4899410-8 (Version None)
Quarter: 2006Q1

REPORT INFORMATION
  Report Type: 
  Country: None (occurrence: None)
  Receive Date: 20060106
  Receipt Date: 20050921
  Transmission Date: 20060701
  Serious: No
  Sender: FDA-Public Use
  Company Number: 200511495BWH

PATIENT
  Age: 49 Year
  Sex: Male
  Weight: 90.7194 kg

DRUGS (7)
  1. LEVITRA [Suspect]
     Indication: ERECTILE DYSFUNCTION
     Dosage: 20 MG, TOTAL DAILY, ORAL
     Route: 048
     Dates: start: 20050716
  2. LEVITRA [Suspect]
     Dosage: 20 MG, TOTAL DAILY, ORAL
     Route: 048
     Dates: start: 20050701
  3. LEVITRA [Suspect]
     Dosage: 20 MG, QD, ORAL
     Route: 048
     Dates: start: 20050722
  4. LEVITRA [Suspect]
     Dosage: 20 MG, QD, ORAL
     Route: 048
     Dates: start: 20050723
  5. LEVITRA [Suspect]
     Dosage: 10 MG, TOTAL DAILY, ORAL
     Route: 048
     Dates: start: 20050101
  6. ALLEGRA [Concomitant]
  7. VERELAN [Concomitant]

REACTIONS (3)
  - HEADACHE [None]
  - HYPERSENSITIVITY [None]
  - MUSCLE TIGHTNESS [None]
